FAERS Safety Report 8505021-5 (Version None)
Quarter: 2012Q3

REPORT INFORMATION
  Report Type: 
  Country: None (occurrence: None)
  Receive Date: 20120702
  Receipt Date: 20120613
  Transmission Date: 20120928
  Serious: Yes (Death)
  Sender: FDA-Public Use
  Company Number: JPI-P-019704

PATIENT
  Age: 39 Year
  Sex: Female

DRUGS (2)
  1. XYREM [Suspect]
     Indication: NARCOLEPSY
     Dosage: 5 GM (2.25 GM, 2 IN 1 D),ORAL, (UNSPECIFIED TITRATING DOSE),ORAL, 7.5 GM (3.75 GM,2 IN 1 ORAL
     Route: 048
     Dates: start: 20110715
  2. XYREM [Suspect]
     Indication: NARCOLEPSY
     Dosage: 5 GM (2.25 GM, 2 IN 1 D),ORAL, (UNSPECIFIED TITRATING DOSE),ORAL, 7.5 GM (3.75 GM,2 IN 1 ORAL
     Route: 048
     Dates: start: 20120119

REACTIONS (3)
  - SOMNAMBULISM [None]
  - FEELING ABNORMAL [None]
  - MUSCLE SPASMS [None]
